FAERS Safety Report 11273600 (Version 1)
Quarter: 2015Q3

REPORT INFORMATION
  Report Type: Spontaneous
  Country: PT (occurrence: PT)
  Receive Date: 20150715
  Receipt Date: 20150715
  Transmission Date: 20151125
  Serious: Yes (Hospitalization, Other)
  Sender: FDA-Public Use
  Company Number: PT-GILEAD-2015-0158934

PATIENT
  Age: 30 Year
  Sex: Female

DRUGS (6)
  1. AMIODARONE [Interacting]
     Active Substance: AMIODARONE
     Dosage: 200 MG, UNK
     Route: 065
     Dates: start: 201501, end: 201506
  2. VARFINE [Concomitant]
     Active Substance: WARFARIN SODIUM
  3. VIGANTOL                           /00318501/ [Concomitant]
  4. HARVONI [Suspect]
     Active Substance: LEDIPASVIR\SOFOSBUVIR
     Indication: HEPATITIS C
     Dosage: UNK
     Route: 065
     Dates: start: 201504, end: 201506
  5. AMIODARONE [Interacting]
     Active Substance: AMIODARONE
     Dosage: 200 MG, QD
     Dates: start: 201501, end: 201501
  6. AMIODARONE [Interacting]
     Active Substance: AMIODARONE
     Indication: PRODUCT USED FOR UNKNOWN INDICATION
     Dosage: 200 MG, BID
     Route: 065
     Dates: start: 20150125, end: 20150130

REACTIONS (6)
  - Nausea [Unknown]
  - Bradycardia [Recovering/Resolving]
  - Drug interaction [Unknown]
  - Dizziness [Unknown]
  - Seizure [Unknown]
  - Hypotension [Unknown]

NARRATIVE: CASE EVENT DATE: 201504
